FAERS Safety Report 10432208 (Version 3)
Quarter: 2014Q4

REPORT INFORMATION
  Report Type: Spontaneous
  Country: IT (occurrence: IT)
  Receive Date: 20140905
  Receipt Date: 20141113
  Transmission Date: 20150528
  Serious: Yes (Life-Threatening, Hospitalization)
  Sender: FDA-Public Use
  Company Number: IT-ACCORD-025665

PATIENT
  Age: 60 Year
  Sex: Male

DRUGS (2)
  1. RISPERIDONE. [Suspect]
     Active Substance: RISPERIDONE
     Dosage: RISPERIDONE 1 BOTTLE
     Dates: start: 20131214, end: 20131214
  2. QUETIAPINE [Suspect]
     Active Substance: QUETIAPINE
     Dosage: QUETIAPINE 300 MG 20 TABLETS
     Route: 048
     Dates: start: 20131214, end: 20131214

REACTIONS (2)
  - Drug abuse [Unknown]
  - Coma [Not Recovered/Not Resolved]

NARRATIVE: CASE EVENT DATE: 20131214
